FAERS Safety Report 23328515 (Version 4)
Quarter: 2024Q2

REPORT INFORMATION
  Report Type: Report from Study
  Country: US (occurrence: US)
  Receive Date: 20231221
  Receipt Date: 20240418
  Transmission Date: 20240716
  Serious: No
  Sender: FDA-Public Use
  Company Number: US-AstraZeneca-CH-00532011A

PATIENT
  Age: 26 Year
  Sex: Male

DRUGS (2)
  1. ULTOMIRIS [Suspect]
     Active Substance: RAVULIZUMAB-CWVZ
     Indication: Myasthenia gravis
     Dosage: 600 MILLIGRAM
     Route: 041
  2. Immunoglobulin [Concomitant]
     Indication: Myasthenia gravis
     Dosage: UNK UNK, Q56
     Route: 042

REACTIONS (2)
  - Feeling abnormal [Unknown]
  - Asthenia [Unknown]

NARRATIVE: CASE EVENT DATE: 20231219
